FAERS Safety Report 6843915-7 (Version None)
Quarter: 2010Q3

REPORT INFORMATION
  Report Type: 
  Country: None (occurrence: None)
  Receive Date: 20100715
  Receipt Date: 20100708
  Transmission Date: 20110219
  Serious: Yes (Hospitalization)
  Sender: FDA-Public Use
  Company Number: US-ELI_LILLY_AND_COMPANY-US201007002082

PATIENT
  Sex: Female

DRUGS (3)
  1. HUMALOG [Suspect]
     Indication: TYPE 1 DIABETES MELLITUS
     Dosage: UNK, UNK
     Route: 058
  2. HUMALOG [Suspect]
     Dosage: 4 U, OTHER
     Dates: start: 20100708, end: 20100708
  3. HUMALOG [Suspect]
     Dosage: 2 U, OTHER
     Dates: start: 20100708, end: 20100708

REACTIONS (5)
  - BLOOD GLUCOSE INCREASED [None]
  - COMA [None]
  - MASTICATION DISORDER [None]
  - NONSPECIFIC REACTION [None]
  - PERSONALITY CHANGE [None]
